FAERS Safety Report 12899454 (Version 1)
Quarter: 2016Q4

REPORT INFORMATION
  Report Type: Report from Study
  Country: DE (occurrence: DE)
  Receive Date: 20161101
  Receipt Date: 20161101
  Transmission Date: 20170207
  Serious: Yes (Other)
  Sender: FDA-Public Use
  Company Number: DE-MYLANLABS-2016M1046715

PATIENT

DRUGS (3)
  1. DOXORUBICIN [Suspect]
     Active Substance: DOXORUBICIN
     Indication: METASTASES TO PERITONEUM
     Dosage: 1.5 MG/M2 IN A 50 ML NACL 0.9% AT A RATE OF 30 ML/MINUTE FOR 30 MINUTES AT 6 WEEK INTERVALS
     Route: 033
  2. CISPLATIN. [Suspect]
     Active Substance: CISPLATIN
     Indication: METASTASES TO PERITONEUM
     Dosage: 7.5 MG/M2 IN A 150 ML NACL 0.9% AT A RATE OF 30 ML/MINUTE FOR 30 MINUTES AT 6 WEEK INTERVALS
     Route: 033
  3. SODIUM CHLORIDE. [Concomitant]
     Active Substance: SODIUM CHLORIDE
     Indication: PRODUCT USED FOR UNKNOWN INDICATION
     Dosage: 0.9%
     Route: 033

REACTIONS (3)
  - Chemical peritonitis [Unknown]
  - Hepatotoxicity [Unknown]
  - Product use issue [Unknown]
